FAERS Safety Report 5634411-3 (Version None)
Quarter: 2008Q1

REPORT INFORMATION
  Report Type: 
  Country: None (occurrence: None)
  Receive Date: 20080222
  Receipt Date: 20080215
  Transmission Date: 20080703
  Serious: Yes (Other)
  Sender: FDA-Public Use
  Company Number: JP-BRISTOL-MYERS SQUIBB COMPANY-14080188

PATIENT
  Age: 50 Year
  Sex: Female

DRUGS (4)
  1. TAXOL [Suspect]
     Indication: METASTASES TO LIVER
     Route: 041
     Dates: start: 20070528
  2. TAXOL [Suspect]
     Indication: METASTASES TO LYMPH NODES
     Route: 041
     Dates: start: 20070528
  3. HERCEPTIN [Suspect]
     Indication: METASTASES TO LIVER
     Route: 041
     Dates: start: 20070528
  4. HERCEPTIN [Suspect]
     Indication: METASTASES TO LYMPH NODES
     Route: 041
     Dates: start: 20070528

REACTIONS (1)
  - HYPOSMIA [None]
